FAERS Safety Report 15081453 (Version 1)
Quarter: 2018Q2

REPORT INFORMATION
  Report Type: Report from Study
  Country: None (occurrence: US)
  Receive Date: 20180628
  Receipt Date: 20180628
  Transmission Date: 20180711
  Serious: Yes (Hospitalization, Other)
  Sender: FDA-Public Use
  Company Number: US-ABBVIE-18K-163-2370585-00

PATIENT
  Age: 58 Year
  Sex: Female

DRUGS (11)
  1. HUMIRA [Suspect]
     Active Substance: ADALIMUMAB
     Route: 058
  2. ASPIRIN. [Concomitant]
     Active Substance: ASPIRIN
     Indication: CEREBROVASCULAR ACCIDENT PROPHYLAXIS
  3. BIOTENE NOS [Concomitant]
     Active Substance: CETYLPYRIDINIUM CHLORIDE OR SODIUM FLUORIDE OR SODIUM MONOFLUOROPHOSPHATE OR GLUCOSE OXIDASE\LACTOFERRIN\LACTOPEROXIDASE BOVINE\LYSOZYME
     Indication: SKIN DISORDER
  4. TURMERIC [Concomitant]
     Active Substance: HERBALS\TURMERIC
     Indication: INFLAMMATION
  5. L-LYSINE [Concomitant]
     Active Substance: LYSINE
     Indication: INFLAMMATION
  6. BIOTENE NOS [Concomitant]
     Active Substance: CETYLPYRIDINIUM CHLORIDE OR SODIUM FLUORIDE OR SODIUM MONOFLUOROPHOSPHATE OR GLUCOSE OXIDASE\LACTOFERRIN\LACTOPEROXIDASE BOVINE\LYSOZYME
     Indication: NAIL DISORDER
  7. HUMIRA [Suspect]
     Active Substance: ADALIMUMAB
     Indication: PSORIATIC ARTHROPATHY
     Route: 058
     Dates: start: 20170922, end: 20171103
  8. BIOTENE NOS [Concomitant]
     Active Substance: CETYLPYRIDINIUM CHLORIDE OR SODIUM FLUORIDE OR SODIUM MONOFLUOROPHOSPHATE OR GLUCOSE OXIDASE\LACTOFERRIN\LACTOPEROXIDASE BOVINE\LYSOZYME
     Indication: HAIR DISORDER
  9. HUMIRA [Suspect]
     Active Substance: ADALIMUMAB
     Route: 058
     Dates: start: 20171208
  10. LOSARTAN. [Concomitant]
     Active Substance: LOSARTAN
     Indication: HYPERTENSION
  11. PINEAPPLE SUPPLEMENT [Concomitant]
     Indication: INFLAMMATION

REACTIONS (6)
  - Granuloma skin [Recovered/Resolved]
  - Urinary tract infection [Recovered/Resolved]
  - Procedural pain [Recovered/Resolved]
  - Psoriatic arthropathy [Recovering/Resolving]
  - Blepharochalasis [Recovered/Resolved]
  - Arthritis [Recovered/Resolved]

NARRATIVE: CASE EVENT DATE: 201710
